FAERS Safety Report 6461832-1 (Version None)
Quarter: 2009Q4

REPORT INFORMATION
  Report Type: 
  Country: None (occurrence: None)
  Receive Date: 20091130
  Receipt Date: 20091123
  Transmission Date: 20100525
  Serious: Yes (Hospitalization)
  Sender: FDA-Public Use
  Company Number: US-MERCK-0911USA04212

PATIENT
  Sex: Female
  Weight: 92 kg

DRUGS (6)
  1. JANUVIA [Suspect]
     Indication: TYPE 2 DIABETES MELLITUS
     Route: 048
     Dates: start: 20080317, end: 20090629
  2. LIPITOR [Concomitant]
     Indication: BLOOD CHOLESTEROL
     Route: 065
  3. TOPROL-XL [Concomitant]
     Indication: HYPERTENSION
     Route: 065
  4. COUMADIN [Concomitant]
     Indication: DEEP VEIN THROMBOSIS
     Route: 065
  5. PROTONIX [Concomitant]
     Indication: GASTROOESOPHAGEAL REFLUX DISEASE
     Route: 065
  6. DYRENIUM [Concomitant]
     Indication: HYPERTENSION
     Route: 065

REACTIONS (5)
  - COUGH [None]
  - DYSPNOEA [None]
  - PLEURAL EFFUSION [None]
  - RHINITIS [None]
  - WHEEZING [None]
